FAERS Safety Report 4878108-6 (Version None)
Quarter: 2006Q1

REPORT INFORMATION
  Report Type: 
  Country: None (occurrence: None)
  Receive Date: 20060110
  Receipt Date: 20051227
  Transmission Date: 20060701
  Serious: Yes (Hospitalization)
  Sender: FDA-Public Use
  Company Number: 2005-136221-NL

PATIENT
  Age: 22 Year
  Sex: Male

DRUGS (1)
  1. NANDROLONE DECANOATE [Suspect]
     Dosage: 25 MG WEEKLY

REACTIONS (8)
  - CSF PRESSURE INCREASED [None]
  - HEADACHE [None]
  - INTRACRANIAL VENOUS SINUS THROMBOSIS [None]
  - MALAISE [None]
  - NAUSEA [None]
  - NUCLEAR MAGNETIC RESONANCE IMAGING BRAIN ABNORMAL [None]
  - PAPILLOEDEMA [None]
  - VOMITING [None]
